FAERS Safety Report 7921885-8 (Version None)
Quarter: 2011Q4

REPORT INFORMATION
  Report Type: 
  Country: None (occurrence: None)
  Receive Date: 20111117
  Receipt Date: 20111108
  Transmission Date: 20120403
  Serious: Yes (Hospitalization, Other)
  Sender: FDA-Public Use
  Company Number: MY-ASTRAZENECA-2011SE68208

PATIENT
  Age: 23 Year
  Sex: Female

DRUGS (1)
  1. SEROQUEL XR [Suspect]
     Indication: SCHIZOPHRENIA
     Route: 048

REACTIONS (2)
  - BENIGN INTRACRANIAL HYPERTENSION [None]
  - OPTIC NEURITIS [None]
